FAERS Safety Report 4712312-2 (Version None)
Quarter: 2005Q3

REPORT INFORMATION
  Report Type: 
  Country: None (occurrence: None)
  Receive Date: 20050711
  Receipt Date: 20050624
  Transmission Date: 20060218
  Serious: Yes (Life-Threatening)
  Sender: FDA-Public Use
  Company Number: 2005-0008447

PATIENT
  Age: 57 Year
  Sex: Female

DRUGS (3)
  1. EMTRIVA [Suspect]
     Indication: HIV INFECTION
     Dosage: 200 MG, 1 IN 1 D, ORAL
     Route: 048
     Dates: start: 20040406, end: 20050217
  2. KALETRA [Suspect]
     Indication: HIV INFECTION
     Dosage: 2 DOSAGE FORMS, 3 IN 1 D
     Dates: start: 20040315
  3. ATOVAQUONE [Suspect]
     Indication: PNEUMOCYSTIS JIROVECI PNEUMONIA
     Dosage: 1 DOSAGE FORMS, 2 IN 1 D
     Dates: start: 20040406, end: 20050513

REACTIONS (1)
  - PULMONARY EMBOLISM [None]
